FAERS Safety Report 18124257 (Version 1)
Quarter: 2020Q3

REPORT INFORMATION
  Report Type: Spontaneous
  Country: BR (occurrence: BR)
  Receive Date: 20200807
  Receipt Date: 20200807
  Transmission Date: 20201103
  Serious: Yes (Hospitalization)
  Sender: FDA-Public Use
  Company Number: BR-PFIZER INC-2020298590

PATIENT
  Sex: Female

DRUGS (3)
  1. POLYMYXIN B. [Suspect]
     Active Substance: POLYMYXIN B
     Indication: KLEBSIELLA INFECTION
     Dosage: UNK
  2. MEROPENEM. [Suspect]
     Active Substance: MEROPENEM
     Indication: KLEBSIELLA INFECTION
     Dosage: UNK
  3. AMIKACIN. [Suspect]
     Active Substance: AMIKACIN
     Indication: KLEBSIELLA INFECTION
     Dosage: UNK

REACTIONS (2)
  - Drug ineffective [Unknown]
  - Pyuria [Not Recovered/Not Resolved]
